FAERS Safety Report 11094837 (Version 1)
Quarter: 2015Q2

REPORT INFORMATION
  Report Type: Spontaneous
  Country: BR (occurrence: BR)
  Receive Date: 20150506
  Receipt Date: 20150506
  Transmission Date: 20150821
  Serious: Yes (Other)
  Sender: FDA-Public Use
  Company Number: BR-JNJFOC-20150424747

PATIENT
  Sex: Female

DRUGS (1)
  1. REMICADE [Suspect]
     Active Substance: INFLIXIMAB
     Indication: RHEUMATOID ARTHRITIS
     Route: 042

REACTIONS (8)
  - Pneumonia [Unknown]
  - Decreased immune responsiveness [Unknown]
  - Dyspnoea [Unknown]
  - Pollakiuria [Recovering/Resolving]
  - Tooth loss [Unknown]
  - Nail injury [Unknown]
  - Weight increased [Unknown]
  - Cough [Unknown]
